FAERS Safety Report 18516585 (Version 1)
Quarter: 2020Q4

REPORT INFORMATION
  Report Type: Report from Study
  Country: US (occurrence: US)
  Receive Date: 20201118
  Receipt Date: 20201118
  Transmission Date: 20210114
  Serious: Yes (Hospitalization)
  Sender: FDA-Public Use
  Company Number: US-IPSEN BIOPHARMACEUTICALS, INC.-2018-19782

PATIENT
  Age: 6 Year
  Sex: Female
  Weight: 30.8 kg

DRUGS (38)
  1. LEVETIRACETAM. [Concomitant]
     Active Substance: LEVETIRACETAM
     Dosage: ONCE
     Route: 042
     Dates: start: 20191110, end: 20191110
  2. LEVETIRACETAM. [Concomitant]
     Active Substance: LEVETIRACETAM
     Dates: start: 20201027
  3. TYLENOL [Concomitant]
     Active Substance: ACETAMINOPHEN
     Dosage: PRN - AS NEEDED
     Route: 054
     Dates: start: 20190319, end: 20190319
  4. CLINDAMYCIN. [Concomitant]
     Active Substance: CLINDAMYCIN
     Dates: start: 20190322, end: 20190328
  5. VALPROATE [Concomitant]
     Active Substance: VALPROIC ACID
     Route: 042
     Dates: start: 20191110, end: 20191110
  6. SABRIL [Concomitant]
     Active Substance: VIGABATRIN
     Indication: EPILEPSY
     Dates: start: 20200120, end: 20201102
  7. CETIRIZINE [Concomitant]
     Active Substance: CETIRIZINE HYDROCHLORIDE
     Indication: SEASONAL ALLERGY
     Dates: start: 201805, end: 20191108
  8. TYLENOL [Concomitant]
     Active Substance: ACETAMINOPHEN
     Indication: PAIN
     Dosage: ONCE
     Route: 054
     Dates: start: 20190318, end: 20190318
  9. CLOBAZAM. [Concomitant]
     Active Substance: CLOBAZAM
     Indication: EPILEPSY
     Dates: start: 2014, end: 20191110
  10. PENTOBARBITAL. [Concomitant]
     Active Substance: PENTOBARBITAL
     Indication: SEIZURE
     Route: 042
     Dates: start: 20191110, end: 20191110
  11. PENTOBARBITAL. [Concomitant]
     Active Substance: PENTOBARBITAL
     Dosage: CONTINUOUS
     Route: 042
     Dates: start: 20191112, end: 20191114
  12. GLYCOPYRROLATE. [Concomitant]
     Active Substance: GLYCOPYRROLATE
     Indication: DROOLING
     Dates: start: 2016
  13. CLINDAMYCIN. [Concomitant]
     Active Substance: CLINDAMYCIN
     Indication: RASH
     Route: 042
     Dates: start: 20190319, end: 20190321
  14. IBUPROFEN. [Concomitant]
     Active Substance: IBUPROFEN
     Indication: PAIN
     Dosage: PRN - AS NEEDED
     Dates: start: 20190319, end: 20190320
  15. EPIDIOLEX [Concomitant]
     Active Substance: CANNABIDIOL
     Indication: EPILEPSY
     Dates: start: 20191014, end: 20191028
  16. DYSPORT [Suspect]
     Active Substance: ABOBOTULINUMTOXINA
     Indication: MUSCLE SPASTICITY
     Dosage: 800 UNITS
     Route: 030
     Dates: start: 20180530
  17. PENTOBARBITAL. [Concomitant]
     Active Substance: PENTOBARBITAL
     Route: 042
     Dates: start: 20191110, end: 20191110
  18. PENTOBARBITAL. [Concomitant]
     Active Substance: PENTOBARBITAL
     Route: 042
     Dates: start: 20191112, end: 20191112
  19. DYSPORT [Suspect]
     Active Substance: ABOBOTULINUMTOXINA
     Indication: OFF LABEL USE
  20. SODIUM CHLORIDE. [Concomitant]
     Active Substance: SODIUM CHLORIDE
     Indication: SEASONAL ALLERGY
     Dosage: 2 SPRAYS
     Route: 045
     Dates: start: 2016, end: 20191108
  21. POLYETHYLENE GLYCOL [Concomitant]
     Active Substance: POLYETHYLENE GLYCOLS
     Indication: CONSTIPATION
     Dates: start: 2016
  22. MORPHINE [Concomitant]
     Active Substance: MORPHINE
     Indication: PAIN
     Dosage: ONCE
     Route: 042
     Dates: start: 20190318, end: 20190318
  23. SABRIL [Concomitant]
     Active Substance: VIGABATRIN
     Dates: start: 20201103
  24. DYSPORT [Suspect]
     Active Substance: ABOBOTULINUMTOXINA
     Indication: MUSCLE SPASTICITY
  25. FLUTICASONE. [Concomitant]
     Active Substance: FLUTICASONE
     Indication: SEASONAL ALLERGY
     Route: 045
     Dates: start: 201805, end: 20191108
  26. SENNA [Concomitant]
     Active Substance: SENNA LEAF\SENNOSIDES\SENNOSIDES A AND B
     Indication: CONSTIPATION
     Dosage: 2 TABLETS
     Dates: start: 201805, end: 20190821
  27. LORAZEPAM. [Concomitant]
     Active Substance: LORAZEPAM
     Indication: SEIZURE
     Route: 042
     Dates: start: 20191109, end: 20191109
  28. LEVETIRACETAM. [Concomitant]
     Active Substance: LEVETIRACETAM
     Indication: EPILEPSY
     Dates: start: 2014, end: 20201026
  29. LEVETIRACETAM. [Concomitant]
     Active Substance: LEVETIRACETAM
     Dates: start: 2014, end: 20201026
  30. EPIDIOLEX [Concomitant]
     Active Substance: CANNABIDIOL
     Dates: start: 20191029, end: 20191108
  31. MIDAZOLAM. [Concomitant]
     Active Substance: MIDAZOLAM
     Indication: SEIZURE
     Route: 042
     Dates: start: 20191110, end: 20191111
  32. MIDAZOLAM. [Concomitant]
     Active Substance: MIDAZOLAM
     Dosage: CONTINUOUS
     Route: 042
     Dates: start: 20191111, end: 20191112
  33. VALPROATE [Concomitant]
     Active Substance: VALPROIC ACID
     Indication: SEIZURE
     Route: 042
     Dates: start: 20191109, end: 20191109
  34. ACETAMINOPHEN. [Concomitant]
     Active Substance: ACETAMINOPHEN
     Indication: PYREXIA
     Dosage: PRN - AS NEEDED
     Dates: start: 201802
  35. LEVETIRACETAM. [Concomitant]
     Active Substance: LEVETIRACETAM
     Dates: start: 20201027
  36. TRIHEXYPHENIDYL [Concomitant]
     Active Substance: TRIHEXYPHENIDYL
     Indication: CEREBRAL PALSY
     Dates: start: 2017
  37. CLOBAZAM. [Concomitant]
     Active Substance: CLOBAZAM
     Indication: SEIZURE
     Dates: start: 20191110
  38. MIDAZOLAM. [Concomitant]
     Active Substance: MIDAZOLAM
     Dosage: CONTINUOUS
     Route: 042
     Dates: start: 20191110, end: 20191111

REACTIONS (6)
  - Off label use [Unknown]
  - Urinary tract infection [Recovered/Resolved]
  - Pneumonia [Recovered/Resolved]
  - Rash [Recovered/Resolved]
  - Seizure [Recovered/Resolved]
  - Influenza [Recovered/Resolved]

NARRATIVE: CASE EVENT DATE: 20190309
